FAERS Safety Report 5489511-8 (Version None)
Quarter: 2007Q4

REPORT INFORMATION
  Report Type: 
  Country: None (occurrence: None)
  Receive Date: 20071018
  Receipt Date: 20071005
  Transmission Date: 20080405
  Serious: Yes (Hospitalization, Other)
  Sender: FDA-Public Use
  Company Number: NL-ELI_LILLY_AND_COMPANY-NL200710001494

PATIENT
  Sex: Female
  Weight: 65 kg

DRUGS (12)
  1. SOMATROPIN [Suspect]
     Indication: GROWTH HORMONE DEFICIENCY
     Dosage: 0.2 MG, DAILY (1/D)
     Route: 058
     Dates: start: 20050408
  2. LEVOTHYROXINE SODIUM [Concomitant]
     Dosage: UNK, UNK
     Dates: start: 20020101
  3. OXAZEPAM [Concomitant]
     Indication: INSOMNIA
     Dosage: UNK, UNK
     Dates: start: 20020101
  4. DIAZEPAM [Concomitant]
     Indication: DEPRESSION
     Dosage: UNK, UNK
     Dates: start: 20020101
  5. HYDROCORTISONE [Concomitant]
     Dosage: UNK, UNK
     Dates: start: 20030101
  6. ALDACTONE [Concomitant]
     Indication: HYPERTENSION
     Dosage: UNK, UNK
     Dates: start: 20050101
  7. AMITRIPTYLINE HCL [Concomitant]
     Indication: DEPRESSION
     Dosage: UNK, UNK
     Dates: start: 20020101
  8. PANTOPRAZOLE SODIUM [Concomitant]
     Indication: DYSPEPSIA
     Dosage: UNK, UNK
     Dates: start: 20050101
  9. LISINOPRIL [Concomitant]
     Indication: HYPERTENSION
     Dosage: UNK, UNK
     Dates: start: 20070101
  10. ENALAPRIL MALEATE [Concomitant]
     Indication: HYPERTENSION
     Dosage: UNK, UNK
     Dates: start: 20040101
  11. HYDROCHLOROTHIAZIDE [Concomitant]
     Indication: HYPERTENSION
     Dosage: UNK, UNK
     Dates: start: 20050101
  12. ATORVASTATIN CALCIUM [Concomitant]
     Indication: HYPERCHOLESTEROLAEMIA
     Dosage: UNK, UNK
     Dates: start: 20030101

REACTIONS (3)
  - ADRENOCORTICAL INSUFFICIENCY ACUTE [None]
  - GASTROENTERITIS [None]
  - RENAL FAILURE [None]
